FAERS Safety Report 6492698-1 (Version None)
Quarter: 2009Q4

REPORT INFORMATION
  Report Type: 
  Country: None (occurrence: None)
  Receive Date: 20091214
  Receipt Date: 20091207
  Transmission Date: 20100525
  Serious: Yes (Other)
  Sender: FDA-Public Use
  Company Number: DK-BRACCO-000041

PATIENT
  Sex: Female

DRUGS (1)
  1. CONTRAST MEDIA [Suspect]
     Indication: SCAN WITH CONTRAST
     Dates: start: 20070901, end: 20070901

REACTIONS (3)
  - INSOMNIA [None]
  - PAIN IN EXTREMITY [None]
  - PRURITUS [None]
